APPROVED DRUG PRODUCT: GLIADEL
Active Ingredient: CARMUSTINE
Strength: 7.7MG
Dosage Form/Route: IMPLANT;INTRACRANIAL
Application: N020637 | Product #001
Applicant: AZURITY PHARMACEUTICALS INC
Approved: Sep 23, 1996 | RLD: Yes | RS: Yes | Type: RX